FAERS Safety Report 17883236 (Version 1)
Quarter: 2020Q2

REPORT INFORMATION
  Report Type: Spontaneous
  Country: US (occurrence: US)
  Receive Date: 20200611
  Receipt Date: 20200611
  Transmission Date: 20200714
  Serious: No
  Sender: FDA-Public Use
  Company Number: US-ASTRAZENECA-2020SE72092

PATIENT
  Sex: Male
  Weight: 93 kg

DRUGS (4)
  1. SYMBICORT [Suspect]
     Active Substance: BUDESONIDE\FORMOTEROL FUMARATE DIHYDRATE
     Indication: ASTHMA
     Dosage: 80/4.5 MCG, TWO PUFFS TWO TIMES A DAY AS REQUIRED
     Route: 055
     Dates: start: 202005
  2. SYMBICORT [Suspect]
     Active Substance: BUDESONIDE\FORMOTEROL FUMARATE DIHYDRATE
     Indication: ASTHMA
     Dosage: 80/4.5 MCG, AS REQUIRED AS REQUIRED
     Route: 055
     Dates: start: 2019
  3. SYMBICORT [Suspect]
     Active Substance: BUDESONIDE\FORMOTEROL FUMARATE DIHYDRATE
     Indication: CHRONIC OBSTRUCTIVE PULMONARY DISEASE
     Dosage: 80/4.5 MCG, AS REQUIRED AS REQUIRED
     Route: 055
     Dates: start: 2019
  4. SYMBICORT [Suspect]
     Active Substance: BUDESONIDE\FORMOTEROL FUMARATE DIHYDRATE
     Indication: CHRONIC OBSTRUCTIVE PULMONARY DISEASE
     Dosage: 80/4.5 MCG, TWO PUFFS TWO TIMES A DAY AS REQUIRED
     Route: 055
     Dates: start: 202005

REACTIONS (6)
  - Chest pain [Recovered/Resolved]
  - Chills [Not Recovered/Not Resolved]
  - Abdominal pain upper [Recovered/Resolved]
  - Eye pain [Not Recovered/Not Resolved]
  - Off label use [Recovered/Resolved]
  - Influenza like illness [Not Recovered/Not Resolved]
